FAERS Safety Report 5133453-4 (Version None)
Quarter: 2006Q4

REPORT INFORMATION
  Report Type: 
  Country: None (occurrence: None)
  Receive Date: 20061024
  Receipt Date: 20060509
  Transmission Date: 20070319
  Serious: Yes (Hospitalization)
  Sender: FDA-Public Use
  Company Number: PHBS2006AT06955

PATIENT
  Age: 76 Year
  Sex: Female

DRUGS (7)
  1. AREDIA [Suspect]
     Indication: MULTIPLE MYELOMA
     Dosage: UNK, UNK
     Route: 065
  2. ZOMETA [Suspect]
     Indication: MULTIPLE MYELOMA
     Dosage: 4 MG, UNK
     Route: 065
     Dates: start: 20030506, end: 20031216
  3. ZOMETA [Suspect]
     Route: 065
     Dates: start: 20040414, end: 20040806
  4. CHEMOTHERAPEUTICS,OTHER [Concomitant]
     Indication: PLASMACYTOMA
     Route: 065
  5. THYREX [Concomitant]
     Dosage: 1/2 - 0 - 0
     Route: 065
  6. HYDROCORTONE [Concomitant]
     Dosage: 5 MG, 2 - 0 - 0
     Route: 065
  7. PAMITOR [Suspect]
     Dosage: 60 MG, UNK
     Route: 065
     Dates: start: 20051001, end: 20060222

REACTIONS (7)
  - BONE TRIMMING [None]
  - DENTAL PROSTHESIS PLACEMENT [None]
  - MOUTH ULCERATION [None]
  - OSTEOMYELITIS [None]
  - OSTEONECROSIS [None]
  - PLASTIC SURGERY [None]
  - SEQUESTRECTOMY [None]
